FAERS Safety Report 14202057 (Version 1)
Quarter: 2017Q4

REPORT INFORMATION
  Report Type: Spontaneous
  Country: FR (occurrence: FR)
  Receive Date: 20171117
  Receipt Date: 20171117
  Transmission Date: 20180321
  Serious: Yes (Hospitalization, Other)
  Sender: FDA-Public Use
  Company Number: FR-009507513-1711FRA005414

PATIENT
  Age: 71 Year
  Sex: Male

DRUGS (7)
  1. PLAVIX [Concomitant]
     Active Substance: CLOPIDOGREL BISULFATE
     Dosage: 75 MG, UNK
  2. METFORMIN HYDROCHLORIDE. [Suspect]
     Active Substance: METFORMIN HYDROCHLORIDE
     Indication: TYPE 2 DIABETES MELLITUS
     Dosage: 850 MG, QD
     Route: 048
     Dates: end: 20171021
  3. VICTOZA [Concomitant]
     Active Substance: LIRAGLUTIDE
     Dosage: 6 MG/ML
  4. CRESTOR [Concomitant]
     Active Substance: ROSUVASTATIN CALCIUM
     Dosage: 10 MG
  5. VELMETIA [Suspect]
     Active Substance: METFORMIN\SITAGLIPTIN
     Indication: TYPE 2 DIABETES MELLITUS
     Dosage: 1 DF, BID
     Route: 048
     Dates: end: 20171021
  6. REPAGLINIDE. [Concomitant]
     Active Substance: REPAGLINIDE
  7. GLUCOR [Concomitant]
     Active Substance: ACARBOSE
     Dosage: 100 MG, UNK
     Route: 048

REACTIONS (12)
  - Acute kidney injury [Unknown]
  - Decreased appetite [Unknown]
  - Lactic acidosis [Recovered/Resolved]
  - Hyperkalaemia [Unknown]
  - Bacterial prostatitis [Unknown]
  - Dehydration [Unknown]
  - Sepsis [Unknown]
  - Drug level above therapeutic [Recovered/Resolved]
  - Vomiting [Unknown]
  - General physical health deterioration [Unknown]
  - Weight decreased [Unknown]
  - Diarrhoea [Unknown]

NARRATIVE: CASE EVENT DATE: 2017
